FAERS Safety Report 9521387 (Version 1)
Quarter: 2013Q3

REPORT INFORMATION
  Report Type: Spontaneous
  Country: US (occurrence: None)
  Receive Date: 20130911
  Receipt Date: 20130911
  Transmission Date: 20140515
  Serious: Yes (Hospitalization)
  Sender: FDA-Public Use
  Company Number: NSR_01247_2013

PATIENT
  Age: 28 Year
  Sex: Male

DRUGS (2)
  1. CLONIDINE [Suspect]
     Indication: PRODUCT USED FOR UNKNOWN INDICATION
     Dosage: DF, TOOK MULTIPLE PILLS}), (0.9MG, (PILLS))
  2. CLONAZEPAM [Suspect]
     Indication: PRODUCT USED FOR UNKNOWN INDICATION
     Dosage: (TOOK 16 PILLS 10-20 MG DAILY (PILLS), (1MG 1X/8 HOURS, (PILLS))

REACTIONS (11)
  - Intentional overdose [None]
  - Suicide attempt [None]
  - Depression [None]
  - Stress [None]
  - Sinus bradycardia [None]
  - Respiratory rate decreased [None]
  - Respiratory acidosis [None]
  - Hypercapnia [None]
  - Agitation [None]
  - Hypertension [None]
  - Drug abuse [None]
